FAERS Safety Report 10274148 (Version 2)
Quarter: 2014Q3

REPORT INFORMATION
  Report Type: Spontaneous
  Country: DK (occurrence: DK)
  Receive Date: 20140702
  Receipt Date: 20140724
  Transmission Date: 20150326
  Serious: Yes (Hospitalization, Other)
  Sender: FDA-Public Use
  Company Number: DK-ASTRAZENECA-2014SE46514

PATIENT
  Age: 38 Year
  Sex: Female

DRUGS (10)
  1. VALPROATE [Interacting]
     Active Substance: VALPROATE SODIUM
     Indication: IRRITABILITY
     Route: 065
  2. VALPROATE [Interacting]
     Active Substance: VALPROATE SODIUM
     Indication: IRRITABILITY
     Route: 065
  3. VALPROATE [Interacting]
     Active Substance: VALPROATE SODIUM
     Indication: AGITATION
     Route: 065
  4. QUETIAPINE [Suspect]
     Active Substance: QUETIAPINE
     Indication: PRODUCT USED FOR UNKNOWN INDICATION
     Route: 048
  5. VALPROATE [Interacting]
     Active Substance: VALPROATE SODIUM
     Indication: AGGRESSION
     Route: 065
  6. FLUPHENAZINE DECANOATE. [Suspect]
     Active Substance: FLUPHENAZINE DECANOATE
     Indication: PRODUCT USED FOR UNKNOWN INDICATION
     Route: 030
  7. VALPROATE [Interacting]
     Active Substance: VALPROATE SODIUM
     Indication: AGITATION
     Route: 065
  8. QUETIAPINE [Suspect]
     Active Substance: QUETIAPINE
     Indication: PRODUCT USED FOR UNKNOWN INDICATION
     Route: 048
  9. VALPROATE [Interacting]
     Active Substance: VALPROATE SODIUM
     Indication: AGGRESSION
     Route: 065
  10. FLUOXETINE [Interacting]
     Active Substance: FLUOXETINE\FLUOXETINE HYDROCHLORIDE
     Indication: PRODUCT USED FOR UNKNOWN INDICATION
     Route: 065

REACTIONS (3)
  - Aggression [Recovered/Resolved]
  - Drug interaction [Recovered/Resolved]
  - Hyperammonaemic encephalopathy [Recovered/Resolved]
